FAERS Safety Report 16922605 (Version 1)
Quarter: 2019Q4

REPORT INFORMATION
  Report Type: Spontaneous
  Country: CN (occurrence: CN)
  Receive Date: 20191016
  Receipt Date: 20191016
  Transmission Date: 20200122
  Serious: Yes (Death, Life-Threatening, Hospitalization, Other)
  Sender: FDA-Public Use
  Company Number: CN-CHEPLA-C20192528

PATIENT
  Age: 57 Year
  Sex: Male

DRUGS (7)
  1. GANCICLOVIR. [Suspect]
     Active Substance: GANCICLOVIR
     Indication: ANTIBIOTIC PROPHYLAXIS
  2. IMIPENEM [Suspect]
     Active Substance: IMIPENEM
     Indication: ANTIBIOTIC PROPHYLAXIS
  3. MYCOPHENOLATE MOFETIL. [Suspect]
     Active Substance: MYCOPHENOLATE MOFETIL
     Indication: IMMUNOSUPPRESSION
  4. TACROLIMUS. [Suspect]
     Active Substance: TACROLIMUS
     Indication: IMMUNOSUPPRESSION
  5. MEROPENEM. [Suspect]
     Active Substance: MEROPENEM
     Indication: KLEBSIELLA INFECTION
     Dosage: 6 G, DAILY
     Route: 065
  6. FOSFOMYCIN [Suspect]
     Active Substance: FOSFOMYCIN
     Indication: KLEBSIELLA INFECTION
     Dosage: 16 G, DAILY
     Route: 065
  7. TIGECYCLINE. [Suspect]
     Active Substance: TIGECYCLINE
     Indication: KLEBSIELLA INFECTION
     Dosage: 200 MG, DAILY
     Route: 065

REACTIONS (12)
  - Loss of consciousness [Unknown]
  - Dyspnoea [Unknown]
  - Heart rate increased [Unknown]
  - Haematocrit decreased [Unknown]
  - Arterial rupture [Recovered/Resolved]
  - Blood pressure decreased [Unknown]
  - Abdominal infection [Fatal]
  - Haemoglobin decreased [Unknown]
  - Acute kidney injury [Unknown]
  - Pneumonia [Fatal]
  - Klebsiella infection [Unknown]
  - Effusion [Unknown]
